FAERS Safety Report 10012242 (Version 4)
Quarter: 2014Q2

REPORT INFORMATION
  Report Type: Report from Study
  Country: US (occurrence: US)
  Receive Date: 20140314
  Receipt Date: 20140626
  Transmission Date: 20141212
  Serious: Yes (Hospitalization)
  Sender: FDA-Public Use
  Company Number: 2014SP001331

PATIENT
  Age: 39 Year
  Sex: Female
  Weight: 85 kg

DRUGS (8)
  1. ESLICARBAZEPINE ACETATE [Suspect]
     Indication: CONVULSION
     Route: 048
     Dates: start: 20140425
  2. ESLICARBAZEPINE ACETATE [Suspect]
     Indication: CONVULSION
     Route: 048
     Dates: start: 20140207, end: 20140424
  3. PREGABALIN [Concomitant]
     Indication: ARTHRITIS
     Route: 048
     Dates: start: 20110225
  4. ALPRAZOLAM [Concomitant]
     Indication: ANXIETY
     Route: 048
     Dates: start: 20070110
  5. CALCIUM [Concomitant]
     Indication: MINERAL SUPPLEMENTATION
     Route: 048
     Dates: start: 2009
  6. OMEGA 3 FISH OIL [Concomitant]
     Indication: NUTRITIONAL SUPPLEMENTATION
     Route: 048
     Dates: start: 2010
  7. TEGRETOL [Concomitant]
     Indication: CONVULSION
     Route: 048
     Dates: start: 20111109
  8. REMERON [Concomitant]
     Indication: DEPRESSION
     Route: 048
     Dates: start: 20130607

REACTIONS (6)
  - Hypokalaemia [Recovered/Resolved]
  - Hypochloraemia [Recovered/Resolved]
  - Blood urea decreased [Recovered/Resolved]
  - Blood urea nitrogen/creatinine ratio decreased [Recovered/Resolved]
  - Anticonvulsant drug level decreased [Recovered/Resolved]
  - Hyponatraemia [Recovered/Resolved]
